FAERS Safety Report 23040846 (Version 1)
Quarter: 2023Q4

REPORT INFORMATION
  Report Type: Spontaneous
  Country: US (occurrence: US)
  Receive Date: 20231006
  Receipt Date: 20231006
  Transmission Date: 20240110
  Serious: No
  Sender: FDA-Public Use
  Company Number: US-JUBILANT CADISTA PHARMACEUTICALS-2022JUB00364

PATIENT
  Sex: Male

DRUGS (5)
  1. PREDNISONE [Suspect]
     Active Substance: PREDNISONE
     Indication: Skin ulcer
     Dosage: 5 MG
     Dates: start: 2021
  2. PREDNISONE [Suspect]
     Active Substance: PREDNISONE
     Dosage: 5 MG
  3. CEPHALEXIN [Suspect]
     Active Substance: CEPHALEXIN
     Indication: Skin ulcer
     Dosage: UNK
     Dates: start: 2021
  4. ATENOLOL [Concomitant]
     Active Substance: ATENOLOL
     Dosage: UNK
     Dates: start: 202110
  5. LEVOTHYROXINE (Elvigin) [Concomitant]
     Dosage: UNK
     Dates: start: 202110

REACTIONS (6)
  - Dermatitis contact [Not Recovered/Not Resolved]
  - Blister [Not Recovered/Not Resolved]
  - Ear swelling [Not Recovered/Not Resolved]
  - Reaction to excipient [Not Recovered/Not Resolved]
  - Therapeutic product effect incomplete [Not Recovered/Not Resolved]
  - Erythema [Not Recovered/Not Resolved]

NARRATIVE: CASE EVENT DATE: 20210101
